FAERS Safety Report 4274982-5 (Version None)
Quarter: 2004Q1

REPORT INFORMATION
  Report Type: 
  Country: None (occurrence: None)
  Receive Date: 20040116
  Receipt Date: 20040107
  Transmission Date: 20041129
  Serious: Yes (Hospitalization)
  Sender: FDA-Public Use
  Company Number: DE-JNJFOC-20040102196

PATIENT
  Age: 48 Year
  Sex: Female
  Weight: 78 kg

DRUGS (11)
  1. REMICADE [Suspect]
     Indication: RHEUMATOID ARTHRITIS
     Dosage: 300 MG, 1 IN 8 WEEK, INTRAVENOUS
     Route: 042
     Dates: start: 20020529
  2. LANTAREL (METHOTREXATE SODIUM) [Concomitant]
  3. FOLIC ACID [Concomitant]
  4. PREDNISONE [Concomitant]
  5. VOLTAREN DISPERS (DICLOFENAC SODIUM) [Concomitant]
  6. PANTOZOL (PANTOPRAZOLE SODIUM) [Concomitant]
  7. SANDOCAL FORTE (SANDOCAL 1000) [Concomitant]
  8. GLUCOBAY (ACARBOSE) TABLETS [Concomitant]
  9. GLUCOPHAGE [Concomitant]
  10. VALORON (VALORON N) [Concomitant]
  11. INSUMAN (INSUMAN) [Concomitant]

REACTIONS (1)
  - IMPAIRED WORK ABILITY [None]
